FAERS Safety Report 7795542-5 (Version None)
Quarter: 2011Q4

REPORT INFORMATION
  Report Type: 
  Country: None (occurrence: None)
  Receive Date: 20111004
  Receipt Date: 20110311
  Transmission Date: 20120403
  Serious: No
  Sender: FDA-Public Use
  Company Number: US-BAYER-2011-022186

PATIENT
  Age: 58 Year
  Sex: Male

DRUGS (3)
  1. LISINOPRIL [Concomitant]
     Dosage: 20 MG, UNK
  2. FENOFIBRATE [Concomitant]
     Dosage: 160 MG, UNK
  3. LEVITRA [Suspect]
     Indication: ERECTILE DYSFUNCTION
     Dosage: 20 MG, Q72HR
     Route: 048
     Dates: start: 20110101

REACTIONS (1)
  - ERECTILE DYSFUNCTION [None]
